FAERS Safety Report 5801288-2 (Version None)
Quarter: 2008Q3

REPORT INFORMATION
  Report Type: 
  Country: None (occurrence: None)
  Receive Date: 20080703
  Receipt Date: 20080703
  Transmission Date: 20090109
  Serious: Yes (Death)
  Sender: FDA-Public Use
  Company Number: None

PATIENT
  Age: 81 Year
  Sex: Female
  Weight: 63.5036 kg

DRUGS (1)
  1. DIGITEK 0.125MG MYLAN-BERTEK [Suspect]
     Dosage: 1 TABLET DAILY
     Dates: start: 20080301, end: 20080501

REACTIONS (4)
  - AMNESIA [None]
  - ANOREXIA [None]
  - CONTUSION [None]
  - EPISTAXIS [None]
